FAERS Safety Report 13501894 (Version 16)
Quarter: 2019Q1

REPORT INFORMATION
  Report Type: Report from Study
  Country: CN (occurrence: CN)
  Receive Date: 20170502
  Receipt Date: 20190123
  Transmission Date: 20190417
  Serious: Yes (Hospitalization)
  Sender: FDA-Public Use
  Company Number: CN-ROCHE-1923407

PATIENT
  Age: 65 Year
  Sex: Female
  Weight: 56 kg

DRUGS (93)
  1. METHOXYPHENAMINE [Concomitant]
     Active Substance: METHOXYPHENAMINE
     Indication: COUGH
     Route: 065
     Dates: start: 20170419, end: 20170419
  2. METHOXYPHENAMINE [Concomitant]
     Active Substance: METHOXYPHENAMINE
     Route: 065
     Dates: start: 20180210, end: 20180216
  3. PEGFILGRASTIM [Concomitant]
     Active Substance: PEGFILGRASTIM
     Route: 065
     Dates: start: 20170218, end: 20170218
  4. FILGRASTIM [Concomitant]
     Active Substance: FILGRASTIM
     Route: 065
     Dates: start: 20170419, end: 20170419
  5. QIANG LI PI PA LU [Concomitant]
     Indication: COUGH
     Route: 065
     Dates: start: 20170419, end: 20170419
  6. FLUCONAZOLE. [Concomitant]
     Active Substance: FLUCONAZOLE
     Indication: COUGH
     Route: 065
     Dates: start: 20170503, end: 20170515
  7. PULMICORT RESPULES [Concomitant]
     Active Substance: BUDESONIDE
     Route: 065
     Dates: start: 20170420, end: 20170422
  8. KEKE PIAN (TCM) [Concomitant]
     Indication: COUGH
     Route: 065
     Dates: start: 20180115, end: 20180120
  9. HOUTTUYNIA CORDATA [Concomitant]
     Indication: PHARYNGITIS
     Route: 065
     Dates: start: 20181101, end: 20181103
  10. PERTUZUMAB. [Suspect]
     Active Substance: PERTUZUMAB
     Dosage: MAINTENANCE DOSE.?DATE OF LAST DOSE OF BLINDED PERTUZUMAB MG ON 09/MAR/2017: 420MG
     Route: 042
     Dates: start: 20170216
  11. DOCETAXEL. [Suspect]
     Active Substance: DOCETAXEL
     Indication: HER-2 POSITIVE BREAST CANCER
     Dosage: 75 MG/M2 (AS PER PROTOCOL) ONCE IN 3 WEEKS (CYCLES 1-4 PER PROTOCOL).?DATE OF LAST DOSE OF DOCETAXEL
     Route: 042
     Dates: start: 20170126
  12. PROMETHAZINE [Concomitant]
     Active Substance: PROMETHAZINE\PROMETHAZINE HYDROCHLORIDE
     Route: 065
     Dates: start: 20170126, end: 20170412
  13. METHOXYPHENAMINE [Concomitant]
     Active Substance: METHOXYPHENAMINE
     Route: 065
     Dates: start: 20170812, end: 20170901
  14. CEFRADINE [Concomitant]
     Active Substance: CEPHRADINE
     Route: 065
     Dates: start: 20170410, end: 20170416
  15. PEGFILGRASTIM [Concomitant]
     Active Substance: PEGFILGRASTIM
     Route: 065
     Dates: start: 20170311, end: 20170311
  16. PULMICORT RESPULES [Concomitant]
     Active Substance: BUDESONIDE
     Indication: COUGH
     Route: 055
     Dates: start: 20170420, end: 20170422
  17. LEVOFLOXACIN MESYLATE [Concomitant]
     Active Substance: LEVOFLOXACIN
     Route: 065
     Dates: start: 20170420, end: 20170430
  18. METHYLPREDNISOLONE SODIUM SUCCINATE. [Concomitant]
     Active Substance: METHYLPREDNISOLONE SODIUM SUCCINATE
     Route: 065
     Dates: start: 20170513, end: 20170515
  19. DIAMMONIUM GLYCYRRHIZINATE [Concomitant]
     Active Substance: HERBALS\DIAMMONIUM GLYCYRRHIZINATE
     Route: 065
     Dates: start: 20170602, end: 20170609
  20. AZITHROMYCIN ANHYDROUS. [Concomitant]
     Active Substance: AZITHROMYCIN ANHYDROUS
     Route: 065
     Dates: start: 20170610, end: 20170612
  21. ZOLEDRONIC ACID [Concomitant]
     Active Substance: ZOLEDRONIC ACID
     Route: 065
     Dates: start: 20171012
  22. PSEUDOEPHEDRINE HYDROCHLORIDE. [Concomitant]
     Active Substance: PSEUDOEPHEDRINE HYDROCHLORIDE
     Indication: NASOPHARYNGITIS
     Route: 065
     Dates: start: 20180112, end: 20180117
  23. DEXAMETHASONE. [Concomitant]
     Active Substance: DEXAMETHASONE
     Route: 065
     Dates: start: 20170125, end: 20170413
  24. METHOXYPHENAMINE [Concomitant]
     Active Substance: METHOXYPHENAMINE
     Indication: PNEUMONIA
     Dosage: COMPOUND METHOXYPHENAMINE CAPSULES
     Route: 065
     Dates: start: 20170406, end: 20170416
  25. METHOXYPHENAMINE [Concomitant]
     Active Substance: METHOXYPHENAMINE
     Route: 065
     Dates: start: 20170610, end: 20170705
  26. PEGFILGRASTIM [Concomitant]
     Active Substance: PEGFILGRASTIM
     Route: 065
     Dates: start: 20170414, end: 20170414
  27. PIPERACILLIN SODIUM/TAZOBACTAM [Concomitant]
     Active Substance: PIPERACILLIN SODIUM\TAZOBACTAM SODIUM
     Route: 065
     Dates: start: 20170503, end: 20170515
  28. METHYLPREDNISOLONE SODIUM SUCCINATE. [Concomitant]
     Active Substance: METHYLPREDNISOLONE SODIUM SUCCINATE
     Route: 065
     Dates: start: 20170610, end: 20170617
  29. SALBUTAMOL SULFATE INHALER [Concomitant]
     Indication: COUGH
     Route: 065
     Dates: start: 20170610, end: 20170617
  30. DESLORATADINE. [Concomitant]
     Active Substance: DESLORATADINE
     Indication: ECZEMA
     Route: 065
     Dates: start: 20170715, end: 20170715
  31. IRBESARTAN. [Concomitant]
     Active Substance: IRBESARTAN
     Indication: HYPERTENSION
     Route: 065
     Dates: start: 20170723
  32. CHLORPHENAMINE MALEATE [Concomitant]
     Active Substance: CHLORPHENIRAMINE MALEATE
     Route: 065
     Dates: start: 20171013, end: 20171013
  33. DEXTROMETHORPHAN HYDROBROMIDE. [Concomitant]
     Active Substance: DEXTROMETHORPHAN HYDROBROMIDE
     Indication: NASOPHARYNGITIS
     Route: 065
     Dates: start: 20180112, end: 20180117
  34. VITAMIN B6 [Concomitant]
     Active Substance: PYRIDOXINE HYDROCHLORIDE
     Indication: PROPHYLAXIS OF NAUSEA AND VOMITING
     Route: 065
     Dates: start: 20170126, end: 20170412
  35. INDOMETACIN [Concomitant]
     Active Substance: INDOMETHACIN
     Indication: PYREXIA
     Route: 065
     Dates: start: 20170314, end: 20170317
  36. POTASSIUM CHLORIDE. [Concomitant]
     Active Substance: POTASSIUM CHLORIDE
     Route: 065
     Dates: start: 20170418, end: 20170419
  37. POTASSIUM CHLORIDE. [Concomitant]
     Active Substance: POTASSIUM CHLORIDE
     Route: 065
     Dates: start: 20170422, end: 20170425
  38. PULMICORT RESPULES [Concomitant]
     Active Substance: BUDESONIDE
     Indication: ASTHMA
     Route: 055
     Dates: start: 20170610, end: 20170617
  39. OMEPRAZOLE SODIUM [Concomitant]
     Active Substance: OMEPRAZOLE SODIUM
     Route: 065
     Dates: start: 20170422, end: 20170425
  40. METHYLPREDNISOLONE SODIUM SUCCINATE. [Concomitant]
     Active Substance: METHYLPREDNISOLONE SODIUM SUCCINATE
     Route: 065
     Dates: start: 20170617, end: 20170627
  41. EUCALYPTOL/LIMONENE/PINENE [Concomitant]
     Indication: COUGH
     Route: 065
     Dates: start: 20170503, end: 20170609
  42. GLYCYRRHIZIN [Concomitant]
     Active Substance: GLYCYRRHIZIN
     Route: 065
     Dates: start: 20170612, end: 20170617
  43. DEXTROMETHORPHAN HYDROBROMIDE. [Concomitant]
     Active Substance: DEXTROMETHORPHAN HYDROBROMIDE
     Route: 065
     Dates: start: 20170807, end: 20170810
  44. DEXTROMETHORPHAN HYDROBROMIDE. [Concomitant]
     Active Substance: DEXTROMETHORPHAN HYDROBROMIDE
     Route: 065
     Dates: start: 20171013, end: 20171013
  45. CHLORPHENAMINE MALEATE [Concomitant]
     Active Substance: CHLORPHENIRAMINE MALEATE
     Route: 065
     Dates: start: 20170807, end: 20170810
  46. CHLORPHENAMINE MALEATE [Concomitant]
     Active Substance: CHLORPHENIRAMINE MALEATE
     Indication: NASOPHARYNGITIS
     Route: 065
     Dates: start: 20180112, end: 20180117
  47. ROXITHROMYCIN [Concomitant]
     Active Substance: ROXITHROMYCIN
     Route: 065
     Dates: start: 20180112, end: 20180120
  48. TRASTUZUMAB. [Suspect]
     Active Substance: TRASTUZUMAB
     Indication: HER-2 POSITIVE BREAST CANCER
     Dosage: LOADING DOSE AS PER PROTOCOL.
     Route: 042
     Dates: start: 20170126
  49. LATAMOXEF SODIUM [Concomitant]
     Route: 065
     Dates: start: 20170330, end: 20170409
  50. POTASSIUM CHLORIDE. [Concomitant]
     Active Substance: POTASSIUM CHLORIDE
     Route: 065
     Dates: start: 20170612, end: 20170617
  51. QIANG LI PI PA LU [Concomitant]
     Indication: ASTHMA
  52. SODIUM CHLORIDE. [Concomitant]
     Active Substance: SODIUM CHLORIDE
     Dosage: CONCENTRATED
     Route: 065
     Dates: start: 20170422, end: 20170425
  53. CEFOXITIN SODIUM [Concomitant]
     Active Substance: CEFOXITIN SODIUM
     Route: 065
     Dates: start: 20170610, end: 20170617
  54. GLUCOSE [Concomitant]
     Active Substance: DEXTROSE
     Route: 065
     Dates: start: 20170612, end: 20170617
  55. METOPROLOL TARTRATE. [Concomitant]
     Active Substance: METOPROLOL TARTRATE
     Indication: HYPERTENSION
     Route: 065
     Dates: start: 20170721, end: 20170807
  56. AMBROXOL HYDROCHLORIDE/GLUCOSE [Concomitant]
     Indication: COUGH
     Route: 065
     Dates: start: 20170807, end: 20170818
  57. GLYCYRRHIZA [Concomitant]
     Active Substance: LICORICE
     Route: 065
     Dates: start: 20170410, end: 20170430
  58. PARACETAMOL [Concomitant]
     Active Substance: ACETAMINOPHEN
     Indication: NASOPHARYNGITIS
     Route: 065
     Dates: start: 20180112, end: 20180117
  59. DEXAMETHASONE SODIUM PHOSPHATE. [Concomitant]
     Active Substance: DEXAMETHASONE SODIUM PHOSPHATE
     Route: 065
     Dates: start: 20170126, end: 20170412
  60. METHOXYPHENAMINE [Concomitant]
     Active Substance: METHOXYPHENAMINE
     Indication: ASTHMA
     Route: 065
     Dates: start: 20170427, end: 20170427
  61. DOXOFYLLINE [Concomitant]
     Active Substance: DOXOFYLLINE
     Indication: ASTHMA
  62. PIPERACILLIN SODIUM/TAZOBACTAM [Concomitant]
     Active Substance: PIPERACILLIN SODIUM\TAZOBACTAM SODIUM
     Route: 065
     Dates: start: 20170418, end: 20170425
  63. PIPERACILLIN SODIUM/TAZOBACTAM [Concomitant]
     Active Substance: PIPERACILLIN SODIUM\TAZOBACTAM SODIUM
     Route: 065
     Dates: start: 20170425, end: 20170430
  64. METHYLPREDNISOLONE SODIUM SUCCINATE. [Concomitant]
     Active Substance: METHYLPREDNISOLONE SODIUM SUCCINATE
     Indication: COUGH
     Route: 065
     Dates: start: 20170509, end: 20170515
  65. ACETYLCYSTEINE. [Concomitant]
     Active Substance: ACETYLCYSTEINE
     Indication: ASTHMA
     Route: 065
     Dates: start: 20170610, end: 20170617
  66. SALBUTAMOL SULFATE INHALER [Concomitant]
     Indication: ASTHMA
  67. POTASSIUM CHLORIDE. [Concomitant]
     Active Substance: POTASSIUM CHLORIDE
     Route: 065
     Dates: start: 20170612, end: 20170617
  68. PARACETAMOL [Concomitant]
     Active Substance: ACETAMINOPHEN
     Route: 065
     Dates: start: 20170807, end: 20170810
  69. PERTUZUMAB. [Suspect]
     Active Substance: PERTUZUMAB
     Indication: HER-2 POSITIVE BREAST CANCER
     Dosage: LOADING DOSE AS PER PROTOCOL
     Route: 042
     Dates: start: 20170126
  70. TRASTUZUMAB. [Suspect]
     Active Substance: TRASTUZUMAB
     Dosage: MAINTENANCE DOSE.?DATE OF LAST DOSE OF TRASTUZUMAB AT 342 MG ON 09/MAR/2017.
     Route: 042
     Dates: start: 20170216
  71. HEPARIN SODIUM. [Concomitant]
     Active Substance: HEPARIN SODIUM
     Route: 065
     Dates: start: 20170126, end: 20170609
  72. DOXOFYLLINE [Concomitant]
     Active Substance: DOXOFYLLINE
     Indication: COUGH
     Route: 065
     Dates: start: 20170418, end: 20170422
  73. LEVOFLOXACIN MESYLATE [Concomitant]
     Active Substance: LEVOFLOXACIN
     Route: 065
     Dates: start: 20170503, end: 20170515
  74. LEVOFLOXACIN MESYLATE [Concomitant]
     Active Substance: LEVOFLOXACIN
     Route: 065
     Dates: start: 20170612, end: 20170617
  75. RANITIDINE HYDROCHLORIDE. [Concomitant]
     Active Substance: RANITIDINE HYDROCHLORIDE
     Route: 065
     Dates: start: 20170509, end: 20170515
  76. METHYLPREDNISOLONE SODIUM SUCCINATE. [Concomitant]
     Active Substance: METHYLPREDNISOLONE SODIUM SUCCINATE
     Route: 065
     Dates: start: 20170610, end: 20170617
  77. ROXITHROMYCIN [Concomitant]
     Active Substance: ROXITHROMYCIN
     Route: 065
     Dates: start: 20170730, end: 20170812
  78. AMBROXOL HYDROCHLORIDE/GLUCOSE [Concomitant]
     Indication: PRODUCTIVE COUGH
  79. ROXITHROMYCIN [Concomitant]
     Active Substance: ROXITHROMYCIN
     Route: 065
     Dates: start: 20170730, end: 20170812
  80. GATIFLOXACIN. [Concomitant]
     Active Substance: GATIFLOXACIN
     Indication: PHARYNGITIS
     Route: 065
     Dates: start: 20181101, end: 20181104
  81. COMPOUND SODIUM CHLORIDE [Concomitant]
     Route: 065
     Dates: start: 20170418, end: 20170422
  82. CIMETIDINE [Concomitant]
     Active Substance: CIMETIDINE
     Route: 065
     Dates: start: 20170126, end: 20170412
  83. PALONOSETRON HYDROCHLORIDE. [Concomitant]
     Active Substance: PALONOSETRON HYDROCHLORIDE
     Indication: PROPHYLAXIS OF NAUSEA AND VOMITING
     Route: 065
     Dates: start: 20170126, end: 20170412
  84. INDOMETACIN [Concomitant]
     Active Substance: INDOMETHACIN
     Route: 065
     Dates: start: 20170419, end: 20170419
  85. INDOMETACIN [Concomitant]
     Active Substance: INDOMETHACIN
     Route: 065
     Dates: start: 20170417, end: 20170417
  86. METOCLOPRAMIDE DIHYDROCHLORIDE [Concomitant]
     Indication: VOMITING
     Route: 065
     Dates: start: 20170422, end: 20170425
  87. SODIUM CHLORIDE. [Concomitant]
     Active Substance: SODIUM CHLORIDE
     Dosage: CONCENTRATED
     Route: 065
     Dates: start: 20170418, end: 20170419
  88. RANITIDINE HYDROCHLORIDE. [Concomitant]
     Active Substance: RANITIDINE HYDROCHLORIDE
     Route: 065
     Dates: start: 20170610, end: 20170701
  89. EUCALYPTOL/LIMONENE/PINENE [Concomitant]
     Route: 065
     Dates: start: 20170809, end: 20170815
  90. ACETYLCYSTEINE. [Concomitant]
     Active Substance: ACETYLCYSTEINE
     Indication: COUGH
     Route: 065
     Dates: start: 20170617, end: 20170710
  91. MOMETASONE FUROATE. [Concomitant]
     Active Substance: MOMETASONE FUROATE
     Indication: ECZEMA
     Route: 065
     Dates: start: 20170715, end: 20170716
  92. AMLODIPINE BESYLATE. [Concomitant]
     Active Substance: AMLODIPINE BESYLATE
     Indication: HYPERTENSION
     Route: 065
     Dates: start: 20170723, end: 20170807
  93. PSEUDOEPHEDRINE HYDROCHLORIDE. [Concomitant]
     Active Substance: PSEUDOEPHEDRINE HYDROCHLORIDE
     Route: 065
     Dates: start: 20170807, end: 20170810

REACTIONS (1)
  - Pneumonia [Not Recovered/Not Resolved]

NARRATIVE: CASE EVENT DATE: 20170310
